FAERS Safety Report 18047777 (Version 1)
Quarter: 2020Q3

REPORT INFORMATION
  Report Type: Spontaneous
  Country: US (occurrence: US)
  Receive Date: 20200720
  Receipt Date: 20200720
  Transmission Date: 20201103
  Serious: No
  Sender: FDA-Public Use
  Company Number: None

PATIENT
  Age: 87 Year
  Sex: Female
  Weight: 69.8 kg

DRUGS (2)
  1. REMDESIVIR. [Suspect]
     Active Substance: REMDESIVIR
     Indication: COVID-19
     Route: 042
     Dates: start: 20200705, end: 20200716
  2. REMDESIVIR. [Suspect]
     Active Substance: REMDESIVIR
     Indication: HYPOXIA
     Route: 042
     Dates: start: 20200705, end: 20200716

REACTIONS (2)
  - Product prescribing error [None]
  - Extra dose administered [None]

NARRATIVE: CASE EVENT DATE: 20200716
